FAERS Safety Report 5345050-6 (Version None)
Quarter: 2007Q2

REPORT INFORMATION
  Report Type: 
  Country: None (occurrence: None)
  Receive Date: 20070425
  Receipt Date: 20061114
  Transmission Date: 20071010
  Serious: Yes (Disabling)
  Sender: FDA-Public Use
  Company Number: WAES 0611USA04641

PATIENT
  Age: 8 Year
  Sex: Female
  Weight: 22.6799 kg

DRUGS (2)
  1. SINGULAIR [Suspect]
     Indication: ASTHMA
     Dosage: 5 MG/DAILY/PO
     Route: 048
     Dates: start: 20061108, end: 20061113
  2. SINGULAIR [Suspect]
     Indication: SEASONAL ALLERGY
     Dosage: 5 MG/DAILY/PO
     Route: 048
     Dates: start: 20061108, end: 20061113

REACTIONS (5)
  - ADVERSE EVENT [None]
  - ARTHRALGIA [None]
  - HEADACHE [None]
  - NIGHTMARE [None]
  - PRURITUS [None]
